FAERS Safety Report 10753471 (Version 1)
Quarter: 2015Q1

REPORT INFORMATION
  Report Type: Spontaneous
  Country: US (occurrence: None)
  Receive Date: 20150129
  Receipt Date: 20150129
  Transmission Date: 20150721
  Serious: Yes (Disabling, Other)
  Sender: FDA-Public Use
  Company Number: None

PATIENT
  Age: 47 Year
  Sex: Female
  Weight: 77.11 kg

DRUGS (1)
  1. LAMIVUDINE/ZIDOVUDINE 150MG/300MG TEVA [Suspect]
     Active Substance: LAMIVUDINE\ZIDOVUDINE
     Indication: HIV INFECTION
     Dosage: 1 TAB TWICE DAILY TAKEN BY MOUTH
     Route: 048
     Dates: start: 20120101, end: 20130601

REACTIONS (17)
  - Blood cholesterol increased [None]
  - Adrenal insufficiency [None]
  - Intervertebral disc disorder [None]
  - Tremor [None]
  - Fatigue [None]
  - Nausea [None]
  - Product substitution issue [None]
  - Bone loss [None]
  - Feeding disorder [None]
  - Laceration [None]
  - Narcolepsy [None]
  - Spinal fracture [None]
  - Thirst [None]
  - Dyspepsia [None]
  - Visual acuity reduced [None]
  - Skin atrophy [None]
  - Cushing^s syndrome [None]

NARRATIVE: CASE EVENT DATE: 20130602
